FAERS Safety Report 4359968-4 (Version None)
Quarter: 2004Q2

REPORT INFORMATION
  Report Type: 
  Country: None (occurrence: None)
  Receive Date: 20040513
  Receipt Date: 20040427
  Transmission Date: 20050107
  Serious: Yes (Hospitalization)
  Sender: FDA-Public Use
  Company Number: DSA_24344_2004

PATIENT
  Age: 7 Month
  Sex: Female
  Weight: 7.5 kg

DRUGS (5)
  1. ENALAPRIL MALEATE [Suspect]
     Dosage: 0.1 MG/KG Q DAY PO
     Route: 048
     Dates: start: 20030513, end: 20030514
  2. ENALAPRIL MALEATE [Suspect]
     Dosage: 0.05 MG/KG Q DAY PO
     Route: 048
     Dates: start: 20030511, end: 20030512
  3. ENALAPRIL MALEATE [Suspect]
     Dosage: 0.25 MG/KG Q DAY PO
     Route: 048
     Dates: start: 20030515, end: 20030520
  4. ENALAPRIL MALEATE [Suspect]
     Dosage: 0.2 MG/KG Q DAY PO
     Route: 048
     Dates: start: 20030521, end: 20030528
  5. ENALAPRIL MALEATE [Suspect]
     Dosage: 0.5 MG/KG Q DAY PO
     Route: 048
     Dates: start: 20030103, end: 20030607

REACTIONS (17)
  - ALANINE AMINOTRANSFERASE INCREASED [None]
  - ASPARTATE AMINOTRANSFERASE INCREASED [None]
  - BLOOD CHLORIDE DECREASED [None]
  - BLOOD CREATININE DECREASED [None]
  - BLOOD LACTATE DEHYDROGENASE INCREASED [None]
  - BLOOD SODIUM DECREASED [None]
  - DIARRHOEA [None]
  - EOSINOPHIL COUNT INCREASED [None]
  - FAECAL OCCULT BLOOD [None]
  - HAEMATOCRIT INCREASED [None]
  - HAEMOGLOBIN INCREASED [None]
  - INFECTION [None]
  - NEUTROPHIL COUNT DECREASED [None]
  - RED BLOOD CELL COUNT INCREASED [None]
  - RENAL IMPAIRMENT [None]
  - WEIGHT INCREASED [None]
  - WHITE BLOOD CELL COUNT INCREASED [None]
